FAERS Safety Report 10525623 (Version 2)
Quarter: 2014Q4

REPORT INFORMATION
  Report Type: Report from Study
  Country: AU (occurrence: AU)
  Receive Date: 20141017
  Receipt Date: 20141023
  Transmission Date: 20150528
  Serious: Yes (Other)
  Sender: FDA-Public Use
  Company Number: PHHY2014AU130235

PATIENT
  Age: 58 Year
  Sex: Male
  Weight: 75 kg

DRUGS (3)
  1. CLOZARIL [Suspect]
     Active Substance: CLOZAPINE
     Dosage: 200 MG, TDS
     Route: 065
  2. CLOZARIL [Suspect]
     Active Substance: CLOZAPINE
     Indication: SCHIZOPHRENIA
     Dosage: UKN
     Route: 065
     Dates: start: 2001
  3. LAXETTES//PHENOLPHTHALEIN [Concomitant]
     Indication: CONSTIPATION
     Dosage: UNK UKN, AT NIGHT
     Route: 065

REACTIONS (21)
  - Haemoglobin decreased [Recovered/Resolved]
  - Gamma-glutamyltransferase increased [Unknown]
  - Glomerular filtration rate decreased [Recovered/Resolved]
  - Blood urea decreased [Unknown]
  - Sinus tachycardia [Unknown]
  - Blood cholesterol increased [Unknown]
  - Mean cell haemoglobin increased [Recovered/Resolved]
  - White blood cell count increased [Unknown]
  - Aspartate aminotransferase increased [Unknown]
  - Blood cholesterol decreased [Unknown]
  - Monocyte count increased [Unknown]
  - Mean cell volume increased [Recovered/Resolved]
  - Alanine aminotransferase increased [Unknown]
  - Red blood cell count decreased [Recovered/Resolved]
  - Antipsychotic drug level above therapeutic [Unknown]
  - Bundle branch block left [Unknown]
  - Blood triglycerides increased [Recovered/Resolved]
  - Blood glucose increased [Unknown]
  - Haematocrit decreased [Recovered/Resolved]
  - Lymphocyte count increased [Recovered/Resolved]
  - Neutrophil count increased [Recovered/Resolved]

NARRATIVE: CASE EVENT DATE: 20080922
